FAERS Safety Report 18161102 (Version 1)
Quarter: 2020Q3

REPORT INFORMATION
  Report Type: Spontaneous
  Country: US (occurrence: US)
  Receive Date: 20200818
  Receipt Date: 20200818
  Transmission Date: 20201103
  Serious: Yes (Life-Threatening, Hospitalization, Other)
  Sender: FDA-Public Use
  Company Number: US-LUPIN PHARMACEUTICALS INC.-2020-04710

PATIENT
  Sex: Male

DRUGS (1)
  1. BOSENTAN. [Suspect]
     Active Substance: BOSENTAN
     Indication: PRODUCT USED FOR UNKNOWN INDICATION
     Dosage: UNK
     Route: 065

REACTIONS (7)
  - Rib fracture [Unknown]
  - Oxygen saturation decreased [Unknown]
  - Product availability issue [Unknown]
  - Retinal detachment [Unknown]
  - Splenic rupture [Unknown]
  - Near death experience [Unknown]
  - Internal haemorrhage [Unknown]
